FAERS Safety Report 8496041-8 (Version None)
Quarter: 2012Q2

REPORT INFORMATION
  Report Type: 
  Country: None (occurrence: None)
  Receive Date: 20120629
  Receipt Date: 20120614
  Transmission Date: 20120825
  Serious: Yes (Hospitalization)
  Sender: FDA-Public Use
  Company Number: QSC-2012-0102

PATIENT
  Age: 48 Year
  Sex: Female

DRUGS (1)
  1. H.P. ACTHAR GEL [Suspect]
     Indication: NEPHROTIC SYNDROME
     Dosage: UNK
     Dates: start: 20110901, end: 20120601

REACTIONS (1)
  - LEUKOCYTOSIS [None]
